FAERS Safety Report 6335093-8 (Version None)
Quarter: 2009Q3

REPORT INFORMATION
  Report Type: 
  Country: None (occurrence: None)
  Receive Date: 20090831
  Receipt Date: 20090820
  Transmission Date: 20100115
  Serious: Yes (Hospitalization)
  Sender: FDA-Public Use
  Company Number: FI-JNJFOC-20090400770

PATIENT
  Age: 28 Year
  Sex: Female

DRUGS (8)
  1. RISPERIDONE [Suspect]
     Dosage: 3-4MG
     Route: 048
  2. RISPERIDONE [Suspect]
     Route: 048
  3. RISPERIDONE [Suspect]
     Indication: PSYCHOTIC DISORDER
     Route: 048
  4. QUETIAPINE [Concomitant]
     Indication: ANXIETY
     Route: 065
  5. SEROQUEL [Concomitant]
     Route: 048
  6. OXAMIN [Concomitant]
     Dosage: 1-2DAY AS NEEDED
     Route: 065
  7. OLANZAPINE [Concomitant]
     Route: 065
  8. SERTRALINE HCL [Concomitant]
     Indication: DEPRESSION
     Route: 065

REACTIONS (2)
  - DRUG EXPOSURE DURING PREGNANCY [None]
  - HOSPITALISATION [None]
